FAERS Safety Report 7039557-3 (Version None)
Quarter: 2010Q4

REPORT INFORMATION
  Report Type: 
  Country: None (occurrence: None)
  Receive Date: 20101012
  Receipt Date: 20101006
  Transmission Date: 20110411
  Serious: Yes (Hospitalization)
  Sender: FDA-Public Use
  Company Number: A0718381A

PATIENT
  Age: 45 Year
  Sex: Female

DRUGS (3)
  1. AVANDIA [Suspect]
     Dates: start: 20040127, end: 20070101
  2. AVANDAMET [Suspect]
     Route: 048
     Dates: start: 20020101, end: 20060101
  3. AVANDARYL [Suspect]
     Route: 048
     Dates: start: 20030101, end: 20060101

REACTIONS (2)
  - INJURY [None]
  - MYOCARDIAL INFARCTION [None]
